FAERS Safety Report 4592828-2 (Version None)
Quarter: 2005Q1

REPORT INFORMATION
  Report Type: 
  Country: None (occurrence: None)
  Receive Date: 20050228
  Receipt Date: 20050217
  Transmission Date: 20050727
  Serious: Yes (Other)
  Sender: FDA-Public Use
  Company Number: HQWYE399218FEB05

PATIENT
  Sex: Female

DRUGS (3)
  1. ENBREL [Suspect]
     Indication: RHEUMATOID ARTHRITIS
     Route: 058
     Dates: start: 20030501
  2. CORTISONE [Concomitant]
     Indication: PAIN
  3. UNSPECIFIED MEDICATION [Concomitant]

REACTIONS (2)
  - LEUKOPENIA [None]
  - LIVER DISORDER [None]
